FAERS Safety Report 9535792 (Version 3)
Quarter: 2013Q4

REPORT INFORMATION
  Report Type: Spontaneous
  Country: US (occurrence: US)
  Receive Date: 20130919
  Receipt Date: 20131023
  Transmission Date: 20140711
  Serious: Yes (Life-Threatening, Hospitalization, Other)
  Sender: FDA-Public Use
  Company Number: US-009507513-1309USA007676

PATIENT
  Sex: Male
  Weight: 81.63 kg

DRUGS (2)
  1. JANUVIA [Suspect]
     Indication: DIABETES MELLITUS
     Dosage: 50 MG, QD
     Route: 048
     Dates: start: 200804, end: 201202
  2. BYETTA [Concomitant]

REACTIONS (2)
  - Pancreatic carcinoma [Recovered/Resolved]
  - Pancreaticoduodenectomy [Unknown]
